FAERS Safety Report 13814159 (Version 1)
Quarter: 2017Q3

REPORT INFORMATION
  Report Type: Spontaneous
  Country: US (occurrence: US)
  Receive Date: 20170730
  Receipt Date: 20170730
  Transmission Date: 20171127
  Serious: Yes (Hospitalization)
  Sender: FDA-Public Use
  Company Number: None

PATIENT
  Age: 73 Year
  Sex: Female
  Weight: 97.2 kg

DRUGS (4)
  1. SINGULAIR [Suspect]
     Active Substance: MONTELUKAST SODIUM
     Indication: ASTHMA
  2. VITAMIN D [Concomitant]
     Active Substance: CHOLECALCIFEROL
  3. SINGULAIR [Suspect]
     Active Substance: MONTELUKAST SODIUM
     Indication: MULTIPLE ALLERGIES
  4. NEUROTIN [Concomitant]
     Active Substance: GABAPENTIN

REACTIONS (6)
  - Insomnia [None]
  - Asthenia [None]
  - Dehydration [None]
  - Anxiety [None]
  - Tremor [None]
  - Urinary tract infection [None]

NARRATIVE: CASE EVENT DATE: 20170723
